FAERS Safety Report 21626423 (Version 1)
Quarter: 2022Q4

REPORT INFORMATION
  Report Type: Spontaneous
  Country: US (occurrence: None)
  Receive Date: 20221121
  Receipt Date: 20221121
  Transmission Date: 20230113
  Serious: Yes (Other)
  Sender: FDA-Public Use
  Company Number: None

PATIENT
  Sex: Female

DRUGS (3)
  1. CAPECITABINE [Suspect]
     Active Substance: CAPECITABINE
     Indication: Vitamin B12 deficiency
     Dosage: TAKE 2 TABLETS BY MOUTH TWICE DAILY FOR 2 WEEKS ON THEN 1 WEEK OFF. TAKE WITH 500MG TABLETS FOR TOTA
     Route: 048
     Dates: start: 20220828
  2. LORAZEPAM [Concomitant]
     Active Substance: LORAZEPAM
  3. PREDNISONE [Concomitant]
     Active Substance: PREDNISONE

REACTIONS (2)
  - Surgery [None]
  - Therapy interrupted [None]

NARRATIVE: CASE EVENT DATE: 20221101
